FAERS Safety Report 6896583-2 (Version None)
Quarter: 2010Q3

REPORT INFORMATION
  Report Type: 
  Country: None (occurrence: None)
  Receive Date: 20100729
  Receipt Date: 20100720
  Transmission Date: 20110219
  Serious: Yes (Other)
  Sender: FDA-Public Use
  Company Number: 2007JP001997

PATIENT
  Age: 32 Year
  Sex: Female

DRUGS (8)
  1. PROGRAF [Suspect]
     Indication: RENAL AND PANCREAS TRANSPLANT
  2. CYCLOPHOSPHAMIDE [Suspect]
     Indication: RENAL AND PANCREAS TRANSPLANT
  3. MYCOPHENOLATE MOFETIL [Concomitant]
  4. PREDNISONE (PREDNISONE) FORMULATION UNKNOWN [Concomitant]
  5. BASILIXIMAB (BASILIXIMAB) FORMULATION UNKNOWN [Concomitant]
  6. ANTIBIOTICS FORMULATION UNKNOWN [Concomitant]
  7. ANTIFUNGALS FORMULATION UNKNOWN [Concomitant]
  8. ANTIVIRALS NOS FORMULATION UNKNOWN [Concomitant]

REACTIONS (4)
  - CYTOMEGALOVIRUS TEST POSITIVE [None]
  - PANCREATIC LEAK [None]
  - PANCYTOPENIA [None]
  - RENAL IMPAIRMENT [None]
